FAERS Safety Report 7937691-4 (Version None)
Quarter: 2011Q4

REPORT INFORMATION
  Report Type: 
  Country: None (occurrence: None)
  Receive Date: 20111123
  Receipt Date: 20111115
  Transmission Date: 20120403
  Serious: Yes (Hospitalization, Other)
  Sender: FDA-Public Use
  Company Number: PHHY2011US101659

PATIENT
  Age: 22 Year
  Sex: Male

DRUGS (2)
  1. CARBAMAZEPINE [Suspect]
  2. QUETIAPINE [Suspect]

REACTIONS (13)
  - ABDOMINAL DISTENSION [None]
  - GRAND MAL CONVULSION [None]
  - AGITATION [None]
  - GASTROINTESTINAL SOUNDS ABNORMAL [None]
  - BLOOD PRESSURE DECREASED [None]
  - UNRESPONSIVE TO STIMULI [None]
  - BODY TEMPERATURE INCREASED [None]
  - BOWEL MOVEMENT IRREGULARITY [None]
  - DEPRESSED LEVEL OF CONSCIOUSNESS [None]
  - ILEUS [None]
  - HEART RATE INCREASED [None]
  - OVERDOSE [None]
  - MUCOSAL DRYNESS [None]
